FAERS Safety Report 16730080 (Version 1)
Quarter: 2019Q3

REPORT INFORMATION
  Report Type: Spontaneous
  Country: US (occurrence: US)
  Receive Date: 20190822
  Receipt Date: 20190822
  Transmission Date: 20191005
  Serious: No
  Sender: FDA-Public Use
  Company Number: US-PACIRA-201500053

PATIENT
  Age: 55 Year
  Sex: Female
  Weight: 45 kg

DRUGS (2)
  1. EXPAREL [Suspect]
     Active Substance: BUPIVACAINE
     Indication: PAIN
     Dosage: 3 CC, 1X, FREQUENCY : 1X
     Route: 050
     Dates: start: 20141002, end: 20141002
  2. EXPAREL [Suspect]
     Active Substance: BUPIVACAINE
     Indication: PAIN
     Dosage: 2 CC, FREQUENCY 1X
     Dates: start: 20140916, end: 20140916

REACTIONS (2)
  - Pruritus [Recovered/Resolved]
  - Dermatitis allergic [Recovered/Resolved]

NARRATIVE: CASE EVENT DATE: 20141003
